FAERS Safety Report 4768627-5 (Version None)
Quarter: 2005Q3

REPORT INFORMATION
  Report Type: 
  Country: None (occurrence: None)
  Receive Date: 20050914
  Receipt Date: 20050907
  Transmission Date: 20060218
  Serious: Yes (Death, Hospitalization)
  Sender: FDA-Public Use
  Company Number: US-JNJFOC-20050902077

PATIENT
  Age: 47 Year
  Sex: Female

DRUGS (7)
  1. ASPIRIN [Suspect]
     Indication: SUICIDE ATTEMPT
     Route: 048
  2. ACETAMINOPHEN/DEXTROMETHORPHAN/DOXYLAMINE/PSEUDOEPHEDRINE [Suspect]
     Indication: SUICIDE ATTEMPT
     Route: 048
  3. ACETAMINOPHEN/HYDROCODONE [Suspect]
     Route: 048
  4. HYDROCODONE BITARTRATE + ACETAMINOPHEN [Suspect]
     Indication: SUICIDE ATTEMPT
     Route: 048
  5. PSEUDOEPHEDRINE/BROMPHENIRAMINE/DEXTROMETHORPHAN [Suspect]
     Indication: SUICIDE ATTEMPT
     Route: 048
  6. INDOMETHACIN [Suspect]
     Indication: SUICIDE ATTEMPT
     Route: 048
  7. ZOLPIDEM [Suspect]
     Indication: SUICIDE ATTEMPT
     Dosage: APPROXIMATELY 30 TABLETS
     Route: 048

REACTIONS (2)
  - COMPLETED SUICIDE [None]
  - INTENTIONAL MISUSE [None]
